FAERS Safety Report 6190718-5 (Version None)
Quarter: 2009Q2

REPORT INFORMATION
  Report Type: 
  Country: None (occurrence: None)
  Receive Date: 20090514
  Receipt Date: 20090512
  Transmission Date: 20091009
  Serious: Yes (Life-Threatening)
  Sender: FDA-Public Use
  Company Number: GB-WYE-G03449909

PATIENT
  Sex: Female

DRUGS (2)
  1. TAZOCIN [Suspect]
     Indication: PROPHYLAXIS
     Dosage: 4.5 G EVERY 1 TOT
     Route: 042
     Dates: start: 20090330, end: 20090330
  2. ATROPINE [Suspect]
     Dosage: UNKNOWN

REACTIONS (3)
  - ANAPHYLACTIC REACTION [None]
  - BRADYCARDIA [None]
  - CARDIO-RESPIRATORY ARREST [None]
